FAERS Safety Report 9167788 (Version 1)
Quarter: 2013Q1

REPORT INFORMATION
  Report Type: Spontaneous
  Country: US (occurrence: US)
  Receive Date: 20130318
  Receipt Date: 20130318
  Transmission Date: 20140127
  Serious: Yes (Life-Threatening, Hospitalization)
  Sender: FDA-Public Use
  Company Number: US-NOVOPROD-372556

PATIENT
  Age: 51 Year
  Sex: Male
  Weight: 86 kg

DRUGS (6)
  1. NOVOLOG [Suspect]
     Route: 048
  2. INSULIN LISPRO [Suspect]
  3. INSULIN GLARGINE [Suspect]
  4. AMLODIPINE [Concomitant]
     Dosage: 10 MG, SINGLE
  5. LISINOPRIL [Concomitant]
  6. ASPIRIN [Concomitant]
     Dosage: 81 MG, QD

REACTIONS (3)
  - Suicide attempt [Recovered/Resolved]
  - Intentional drug misuse [Recovered/Resolved]
  - Hypoglycaemia [Recovered/Resolved]
